FAERS Safety Report 8834507 (Version 1)
Quarter: 2012Q4

REPORT INFORMATION
  Report Type: 
  Country: GR (occurrence: GR)
  Receive Date: 20121010
  Receipt Date: 20121010
  Transmission Date: 20130627
  Serious: Yes (Disabling, Other)
  Sender: FDA-Public Use
  Company Number: GR-ROCHE-1139102

PATIENT
  Age: 60 Year
  Sex: Male

DRUGS (1)
  1. LARIAM [Suspect]
     Indication: MALARIA PROPHYLAXIS
     Route: 065

REACTIONS (4)
  - Disability [Recovered/Resolved]
  - Vertigo [Recovered/Resolved]
  - Deafness [Not Recovered/Not Resolved]
  - Nerve compression [Not Recovered/Not Resolved]
